FAERS Safety Report 9519259 (Version 1)
Quarter: 2013Q3

REPORT INFORMATION
  Report Type: Spontaneous
  Country: US (occurrence: None)
  Receive Date: 20130911
  Receipt Date: 20130911
  Transmission Date: 20140515
  Serious: Yes (Life-Threatening, Hospitalization, Other)
  Sender: FDA-Public Use
  Company Number: None

PATIENT
  Age: 7 Year
  Sex: 0
  Weight: 19.05 kg

DRUGS (1)
  1. CLEOCIN PEDIATRIC [Suspect]
     Indication: STREPTOCOCCAL INFECTION
     Dates: start: 20090320, end: 20090330

REACTIONS (4)
  - Clostridium difficile infection [None]
  - Gastrointestinal disorder [None]
  - Abdominal pain [None]
  - Haematochezia [None]
